FAERS Safety Report 7217756-5 (Version None)
Quarter: 2011Q1

REPORT INFORMATION
  Report Type: 
  Country: None (occurrence: None)
  Receive Date: 20110110
  Receipt Date: 20110103
  Transmission Date: 20110831
  Serious: Yes (Hospitalization, Other)
  Sender: FDA-Public Use
  Company Number: US-ELI_LILLY_AND_COMPANY-US201011003575

PATIENT
  Sex: Female
  Weight: 77.098 kg

DRUGS (10)
  1. RANITIDINE [Concomitant]
  2. TYLENOL EXTRA-STRENGTH [Concomitant]
     Indication: PAIN
     Dates: start: 20101001
  3. ZOCOR [Concomitant]
     Indication: BLOOD CHOLESTEROL INCREASED
  4. DIOVAN HCT [Concomitant]
     Indication: BLOOD PRESSURE
  5. CARTEOLOL HYDROCHLORIDE [Concomitant]
     Indication: GLAUCOMA
  6. FOLIC ACID [Concomitant]
  7. BYETTA [Suspect]
     Dosage: 10 UG, 2/D
  8. BYETTA [Suspect]
     Indication: TYPE 2 DIABETES MELLITUS
     Dosage: 5 UG, 2/D
     Route: 058
     Dates: start: 20050601, end: 20050701
  9. BYETTA [Suspect]
     Dosage: 10 UG, 2/D
     Route: 058
     Dates: start: 20050701
  10. METFORMIN [Concomitant]
     Indication: TYPE 2 DIABETES MELLITUS
     Dosage: 1000 MG, 2/D
     Route: 048

REACTIONS (10)
  - VISUAL IMPAIRMENT [None]
  - PROCEDURAL PAIN [None]
  - MEDICAL DEVICE COMPLICATION [None]
  - DIARRHOEA [None]
  - CATARACT [None]
  - WEIGHT DECREASED [None]
  - EYE HAEMORRHAGE [None]
  - VITREOUS FLOATERS [None]
  - SKIN DISCOLOURATION [None]
  - INSOMNIA [None]
